FAERS Safety Report 12405640 (Version 1)
Quarter: 2016Q2

REPORT INFORMATION
  Report Type: Report from Study
  Country: NL (occurrence: NL)
  Receive Date: 20160526
  Receipt Date: 20160526
  Transmission Date: 20160815
  Serious: Yes (Death, Hospitalization, Other)
  Sender: FDA-Public Use
  Company Number: NL-AMGEN-NLDSL2015082641

PATIENT
  Age: 74 Year
  Sex: Female

DRUGS (3)
  1. XGEVA [Suspect]
     Active Substance: DENOSUMAB
     Dosage: UNK
     Route: 058
  2. XGEVA [Suspect]
     Active Substance: DENOSUMAB
     Dosage: UNK
     Route: 058
  3. XGEVA [Suspect]
     Active Substance: DENOSUMAB
     Indication: PROPHYLAXIS
     Dosage: 1.7 ML (120 MG), Q4WK
     Route: 058

REACTIONS (8)
  - Gastrointestinal inflammation [Fatal]
  - Nausea [Recovering/Resolving]
  - Diarrhoea [Recovered/Resolved]
  - Vomiting [Not Recovered/Not Resolved]
  - Ileus [Not Recovered/Not Resolved]
  - Infection [Unknown]
  - Hospitalisation [Not Recovered/Not Resolved]
  - Arthralgia [Recovering/Resolving]

NARRATIVE: CASE EVENT DATE: 2015
